FAERS Safety Report 7463361-5 (Version None)
Quarter: 2011Q2

REPORT INFORMATION
  Report Type: 
  Country: None (occurrence: None)
  Receive Date: 20110506
  Receipt Date: 20110429
  Transmission Date: 20111010
  Serious: Yes (Death, Hospitalization)
  Sender: FDA-Public Use
  Company Number: A0889186A

PATIENT
  Sex: Female
  Weight: 70.9 kg

DRUGS (5)
  1. AVANDIA [Suspect]
     Dosage: 4MG PER DAY
     Route: 048
     Dates: end: 20051008
  2. ASPIRIN [Concomitant]
  3. GEMFIBROZIL [Concomitant]
  4. VERAPAMIL [Concomitant]
  5. CAPTOPRIL [Concomitant]

REACTIONS (6)
  - THROMBOCYTOPENIA [None]
  - DEATH [None]
  - WHITE BLOOD CELL COUNT DECREASED [None]
  - ANAEMIA [None]
  - HYPERTENSION [None]
  - MONOCLONAL GAMMOPATHY [None]
